FAERS Safety Report 10061136 (Version 2)
Quarter: 2014Q2

REPORT INFORMATION
  Report Type: Spontaneous
  Country: US (occurrence: US)
  Receive Date: 20140406
  Receipt Date: 20140609
  Transmission Date: 20141212
  Serious: Yes (Death)
  Sender: FDA-Public Use
  Company Number: US-BRISTOL-MYERS SQUIBB COMPANY-20592788

PATIENT
  Age: 62 Year
  Sex: Male
  Weight: 103.85 kg

DRUGS (25)
  1. MILK OF MAGNESIA [Concomitant]
  2. ZOLPIDEM [Concomitant]
  3. MARINOL [Concomitant]
  4. ATORVASTATIN [Concomitant]
  5. BYETTA [Suspect]
     Dates: start: 20080118, end: 20100411
  6. VICTOZA [Suspect]
     Dates: start: 20100904, end: 20130218
  7. AMITRIPTYLINE [Concomitant]
  8. ASPIRIN [Concomitant]
  9. CRESTOR [Concomitant]
  10. FISH OIL [Concomitant]
  11. HUMALOG [Concomitant]
  12. LANTUS [Concomitant]
  13. LYRICA [Concomitant]
  14. MULTIVITAMIN [Concomitant]
     Dosage: 1DF=1TAB
  15. DOCUSATE [Concomitant]
  16. NOVOLOG [Concomitant]
  17. MEROPENEM [Concomitant]
  18. VANCOMYCIN [Concomitant]
     Route: 042
  19. FENOFIBRATE [Concomitant]
  20. NORCO [Concomitant]
     Dosage: 1DF=10/325MG
     Route: 048
  21. MORPHINE SULFATE [Concomitant]
     Route: 042
  22. REGLAN [Concomitant]
  23. ZOFRAN [Concomitant]
  24. PROTONIX [Concomitant]
     Route: 042
  25. PROCHLORPERAZINE [Concomitant]

REACTIONS (1)
  - Pancreatic carcinoma [Fatal]
